FAERS Safety Report 11322279 (Version 3)
Quarter: 2015Q3

REPORT INFORMATION
  Report Type: Report from Study
  Country: JP (occurrence: JP)
  Receive Date: 20150730
  Receipt Date: 20150930
  Transmission Date: 20151125
  Serious: Yes (Hospitalization)
  Sender: FDA-Public Use
  Company Number: JP-AMGEN-JPNCT2015074193

PATIENT
  Age: 68 Year
  Sex: Female
  Weight: 48 kg

DRUGS (15)
  1. CALCIUM [Concomitant]
     Active Substance: CALCIUM
     Dosage: 230 MG, UNK
     Route: 048
     Dates: start: 20130123
  2. PURSENNID                          /00142207/ [Concomitant]
     Active Substance: SENNOSIDES A AND B
     Dosage: 2 UNK, UNK
     Route: 048
     Dates: start: 20150117, end: 20150117
  3. XYLOCAINE [Concomitant]
     Active Substance: LIDOCAINE HYDROCHLORIDE
     Dosage: 30 ML, UNK
     Route: 061
     Dates: start: 20150117, end: 20150117
  4. VITAMIN D                          /00107901/ [Concomitant]
     Active Substance: ERGOCALCIFEROL
     Dosage: 200 IU, UNK
     Route: 048
     Dates: start: 20130123
  5. OLMESARTAN MEDOXOMIL. [Concomitant]
     Active Substance: OLMESARTAN MEDOXOMIL
     Dosage: 10 MG, UNK
     Route: 048
     Dates: start: 20111219, end: 20150802
  6. TAGAMET [Concomitant]
     Active Substance: CIMETIDINE
     Dosage: 200 MG, UNK
     Route: 048
     Dates: start: 20140303, end: 20150729
  7. POTASSIUM CHLORIDE. [Concomitant]
     Active Substance: POTASSIUM CHLORIDE
     Dosage: 1.485 G, UNK
     Route: 048
     Dates: start: 20150117, end: 20150117
  8. SODIUM CHLORIDE. [Concomitant]
     Active Substance: SODIUM CHLORIDE
     Dosage: 2.93 G, UNK
     Route: 048
     Dates: start: 20150117, end: 20150117
  9. LAXOBERON [Concomitant]
     Active Substance: SODIUM PICOSULFATE
     Dosage: 10 ML, UNK
     Route: 048
     Dates: start: 20150117, end: 20150117
  10. SODIUM SULFATE [Concomitant]
     Active Substance: SODIUM SULFATE
     Dosage: 11.37 G, UNK
     Route: 048
     Dates: start: 20150117, end: 20150117
  11. MARZULENE S [Concomitant]
     Active Substance: GLUTAMINE\SODIUM GUALENATE
     Dosage: 1.5 G, UNK
     Route: 048
     Dates: start: 20120209, end: 20141110
  12. SODIUM BICARBONATE. [Concomitant]
     Active Substance: SODIUM BICARBONATE
     Dosage: 3.37 G, UNK
     Route: 048
     Dates: start: 20150117, end: 20150117
  13. DENOSUMAB [Suspect]
     Active Substance: DENOSUMAB
     Indication: OSTEOPOROSIS POSTMENOPAUSAL
     Dosage: 1 ML, UNK
     Route: 058
     Dates: start: 20140324
  14. BUSCOPAN [Concomitant]
     Active Substance: BUTYLSCOPOLAMINE BROMIDE
     Dosage: 1 UNK, UNK
     Route: 030
     Dates: start: 20150117, end: 20150117
  15. AMG 785 [Suspect]
     Active Substance: ROMOSOZUMAB
     Indication: OSTEOPOROSIS POSTMENOPAUSAL
     Dosage: 210 MG, UNK
     Route: 058
     Dates: start: 20130327, end: 20140228

REACTIONS (1)
  - Osteoarthritis [Recovered/Resolved]

NARRATIVE: CASE EVENT DATE: 20150201
